FAERS Safety Report 9746616 (Version 2)
Quarter: 2013Q4

REPORT INFORMATION
  Report Type: Report from Study
  Country: BR (occurrence: BR)
  Receive Date: 20131211
  Receipt Date: 20131227
  Transmission Date: 20140711
  Serious: Yes (Hospitalization)
  Sender: FDA-Public Use
  Company Number: BR-ABBVIE-13P-020-1175718-00

PATIENT
  Age: 53 Year
  Sex: Female
  Weight: 60 kg

DRUGS (3)
  1. HUMIRA [Suspect]
     Indication: PRODUCT USED FOR UNKNOWN INDICATION
     Route: 058
     Dates: start: 200901, end: 20131119
  2. SUCRAFILM [Concomitant]
     Indication: GASTRIC DISORDER
     Dosage: TWICE DAILY
     Route: 050
     Dates: start: 201311
  3. ESOMEX [Concomitant]
     Indication: GASTRIC DISORDER
     Route: 048
     Dates: start: 201311

REACTIONS (5)
  - Hepatitis [Recovering/Resolving]
  - Pyrexia [Unknown]
  - Pyrexia [Unknown]
  - Weight decreased [Recovered/Resolved]
  - Liver function test abnormal [Unknown]
